FAERS Safety Report 9749090 (Version 2)
Quarter: 2013Q4

REPORT INFORMATION
  Report Type: Spontaneous
  Country: US (occurrence: US)
  Receive Date: 20131212
  Receipt Date: 20131212
  Transmission Date: 20140711
  Serious: Yes (Other)
  Sender: FDA-Public Use
  Company Number: US-TEVA-392639USA

PATIENT
  Age: 42 Year
  Sex: Female

DRUGS (2)
  1. PARAGARD 380A [Suspect]
     Indication: CONTRACEPTION
     Route: 015
     Dates: start: 2009, end: 20130404
  2. EFFEXOR [Concomitant]

REACTIONS (2)
  - Device dislocation [Not Recovered/Not Resolved]
  - Medical device complication [Recovering/Resolving]
